FAERS Safety Report 8095605-3 (Version None)
Quarter: 2012Q1

REPORT INFORMATION
  Report Type: 
  Country: None (occurrence: None)
  Receive Date: 20120129
  Receipt Date: 20111227
  Transmission Date: 20120608
  Serious: No
  Sender: FDA-Public Use
  Company Number: US-ABBOTT-11P-163-0887158-00

PATIENT
  Age: 63 Year
  Sex: Female

DRUGS (15)
  1. POTASSIUM CHLORIDE [Concomitant]
     Indication: PRODUCT USED FOR UNKNOWN INDICATION
  2. HUMIRA [Suspect]
     Indication: CROHN'S DISEASE
     Dates: start: 20111226
  3. LUNESTA [Concomitant]
     Indication: INSOMNIA
     Dosage: AT BEDTIME
  4. PRISTIQ [Concomitant]
     Indication: DEPRESSION
  5. VERAPAMIL [Concomitant]
     Indication: HYPERTENSION
  6. MAGNESIUM GLUCONATE [Concomitant]
     Indication: CROHN'S DISEASE
  7. IMODIUM [Concomitant]
     Indication: PRODUCT USED FOR UNKNOWN INDICATION
  8. LOVAZA [Concomitant]
     Indication: PRODUCT USED FOR UNKNOWN INDICATION
  9. L-GLUTAMINE [Concomitant]
     Indication: PRODUCT USED FOR UNKNOWN INDICATION
  10. DOXEPIN [Concomitant]
     Indication: DEPRESSION
  11. CLARITIN [Concomitant]
     Indication: HYPERSENSITIVITY
  12. GERMANIUM [Concomitant]
     Indication: SUPPLEMENTATION THERAPY
  13. HUMIRA [Suspect]
     Dosage: ON DAY 2
  14. OMEPRAZOLE [Concomitant]
     Indication: GASTROOESOPHAGEAL REFLUX DISEASE
  15. VITAMIN B COMPLEX CAP [Concomitant]
     Indication: PRODUCT USED FOR UNKNOWN INDICATION

REACTIONS (2)
  - INCORRECT STORAGE OF DRUG [None]
  - DRUG ADMINISTRATION ERROR [None]
